FAERS Safety Report 26129530 (Version 1)
Quarter: 2025Q4

REPORT INFORMATION
  Report Type: Spontaneous
  Country: EU (occurrence: EU)
  Receive Date: 20251208
  Receipt Date: 20251208
  Transmission Date: 20260117
  Serious: Yes (Other)
  Sender: JOHNSON AND JOHNSON
  Company Number: EU-TEVA-VS-3397806

PATIENT
  Age: 43 Year
  Sex: Female

DRUGS (1)
  1. TOPAMAX [Suspect]
     Active Substance: TOPIRAMATE
     Indication: Product used for unknown indication
     Dosage: PILLS
     Route: 048

REACTIONS (4)
  - Loss of personal independence in daily activities [Unknown]
  - Feeling abnormal [Unknown]
  - Asthenia [Unknown]
  - Pharmacophobia [Unknown]
